FAERS Safety Report 6882388-5 (Version None)
Quarter: 2010Q3

REPORT INFORMATION
  Report Type: 
  Country: None (occurrence: None)
  Receive Date: 20100702
  Receipt Date: 20091112
  Transmission Date: 20110219
  Serious: Yes (Other)
  Sender: FDA-Public Use
  Company Number: 2009277211

PATIENT
  Age: 57 Year
  Sex: Female
  Weight: 54 kg

DRUGS (1)
  1. SERTRALINE HYDROCHLORIDE [Suspect]
     Indication: ANXIETY
     Dosage: 100 MG, 1X/DAY, ORAL
     Route: 048

REACTIONS (5)
  - FIBROMYALGIA [None]
  - HYPOAESTHESIA ORAL [None]
  - MYOCARDIAL INFARCTION [None]
  - ORAL DISCOMFORT [None]
  - TABLET ISSUE [None]
